FAERS Safety Report 12184072 (Version 3)
Quarter: 2016Q1

REPORT INFORMATION
  Report Type: Spontaneous
  Country: US (occurrence: US)
  Receive Date: 20160316
  Receipt Date: 20160325
  Transmission Date: 20160526
  Serious: No
  Sender: FDA-Public Use
  Company Number: US-JNJFOC-20160310184

PATIENT
  Age: 56 Year
  Sex: Female
  Weight: 104.33 kg

DRUGS (1)
  1. DURAGESIC [Suspect]
     Active Substance: FENTANYL
     Indication: PRODUCT USED FOR UNKNOWN INDICATION
     Route: 062
     Dates: start: 2016

REACTIONS (5)
  - Wrong technique in product usage process [Unknown]
  - Rash [Unknown]
  - Wrong technique in product usage process [Unknown]
  - Hyperhidrosis [Unknown]
  - Pruritus [Unknown]

NARRATIVE: CASE EVENT DATE: 20160309
